FAERS Safety Report 6510519-5 (Version None)
Quarter: 2009Q4

REPORT INFORMATION
  Report Type: 
  Country: None (occurrence: None)
  Receive Date: 20091222
  Receipt Date: 20091214
  Transmission Date: 20100525
  Serious: Yes (Other)
  Sender: FDA-Public Use
  Company Number: US-JNJFOC-20091204362

PATIENT
  Sex: Female
  Weight: 79.83 kg

DRUGS (3)
  1. REMICADE [Suspect]
     Route: 042
     Dates: start: 20060101, end: 20070101
  2. REMICADE [Suspect]
     Indication: COLITIS ULCERATIVE
     Route: 042
     Dates: start: 20060101, end: 20070101
  3. ASACOL [Concomitant]
     Indication: COLITIS ULCERATIVE
     Dosage: DAILY FOR 1 YEAR

REACTIONS (4)
  - ABNORMAL DREAMS [None]
  - DIZZINESS [None]
  - DRUG INEFFECTIVE [None]
  - HALLUCINATION [None]
